FAERS Safety Report 13038453 (Version 2)
Quarter: 2016Q4

REPORT INFORMATION
  Report Type: Spontaneous
  Country: US (occurrence: US)
  Receive Date: 20161219
  Receipt Date: 20161222
  Transmission Date: 20170207
  Serious: No
  Sender: FDA-Public Use
  Company Number: US-009507513-1612USA002383

PATIENT
  Age: 25 Year
  Sex: Female
  Weight: 107.4 kg

DRUGS (1)
  1. NEXPLANON [Suspect]
     Active Substance: ETONOGESTREL
     Indication: CONTRACEPTION
     Dosage: 1 DF, 3 YEAR IMPLANT, ON RIGHT ARM

REACTIONS (3)
  - Device breakage [Unknown]
  - Device kink [Unknown]
  - Device expulsion [Unknown]
